FAERS Safety Report 9701278 (Version 1)
Quarter: 2013Q4

REPORT INFORMATION
  Report Type: Spontaneous
  Country: US (occurrence: US)
  Receive Date: 20131121
  Receipt Date: 20131121
  Transmission Date: 20140711
  Serious: No
  Sender: FDA-Public Use
  Company Number: US-GILEAD-2008-0016252

PATIENT
  Age: 81 Year
  Sex: Male
  Weight: 66.68 kg

DRUGS (10)
  1. LETAIRIS [Suspect]
     Indication: PULMONARY ARTERIAL HYPERTENSION
     Route: 048
     Dates: start: 20080312, end: 20080328
  2. METFORMIN [Concomitant]
     Route: 048
  3. LEVOTHYROXIN [Concomitant]
     Route: 048
  4. ATENOLOL [Concomitant]
     Route: 048
  5. LEXAPRO [Concomitant]
     Route: 048
  6. FUROSEMIDE [Concomitant]
     Route: 048
  7. ENTOCORT EC [Concomitant]
     Route: 048
  8. NIASPAN [Concomitant]
     Route: 048
  9. LANOXIN [Concomitant]
     Route: 048
  10. PREVACID [Concomitant]
     Route: 048

REACTIONS (1)
  - Haemoglobin decreased [None]
